FAERS Safety Report 8323090-2 (Version None)
Quarter: 2012Q2

REPORT INFORMATION
  Report Type: 
  Country: None (occurrence: None)
  Receive Date: 20120430
  Receipt Date: 20120423
  Transmission Date: 20120825
  Serious: Yes (Other)
  Sender: FDA-Public Use
  Company Number: IE-ABBOTT-12P-229-0908750-00

PATIENT
  Sex: Female
  Weight: 63 kg

DRUGS (3)
  1. FENOFIBRATE [Suspect]
     Indication: BLOOD CHOLESTEROL INCREASED
     Route: 048
     Dates: start: 20120111, end: 20120123
  2. PERINDOPRIL ERBUMINE [Concomitant]
     Indication: HYPERTENSION
     Route: 048
  3. ASPIRIN [Concomitant]
     Indication: HYPERTENSION
     Route: 048

REACTIONS (7)
  - JAUNDICE [None]
  - PRESYNCOPE [None]
  - INFLUENZA LIKE ILLNESS [None]
  - HEPATITIS [None]
  - ABDOMINAL PAIN UPPER [None]
  - MALAISE [None]
  - ASTHENIA [None]
